FAERS Safety Report 15718757 (Version 1)
Quarter: 2018Q4

REPORT INFORMATION
  Report Type: Spontaneous
  Country: US (occurrence: US)
  Receive Date: 20181213
  Receipt Date: 20181213
  Transmission Date: 20190205
  Serious: No
  Sender: FDA-Public Use
  Company Number: US-GLAXOSMITHKLINE-US2018GSK218294

PATIENT
  Age: 55 Year
  Sex: Female

DRUGS (3)
  1. ADVAIR HFA [Suspect]
     Active Substance: FLUTICASONE PROPIONATE\SALMETEROL XINAFOATE
     Indication: ASTHMA
     Dosage: 1 PUFF(S), BID
     Route: 055
     Dates: start: 2018
  2. ADVAIR DISKUS [Suspect]
     Active Substance: FLUTICASONE PROPIONATE\SALMETEROL XINAFOATE
     Indication: ASTHMA
     Dosage: 1 PUFF(S), BID
     Route: 055
     Dates: start: 201808, end: 20181128
  3. ADVAIR DISKUS [Suspect]
     Active Substance: FLUTICASONE PROPIONATE\SALMETEROL XINAFOATE
     Indication: BRONCHITIS

REACTIONS (13)
  - Dyspnoea [Recovered/Resolved]
  - Expired product administered [Unknown]
  - Obstructive airways disorder [Unknown]
  - Product use in unapproved indication [Unknown]
  - Musculoskeletal chest pain [Not Recovered/Not Resolved]
  - Cough [Unknown]
  - Bronchitis [Recovered/Resolved]
  - Malaise [Unknown]
  - Off label use [Unknown]
  - Throat irritation [Not Recovered/Not Resolved]
  - Back pain [Not Recovered/Not Resolved]
  - Medication error [Unknown]
  - Underdose [Unknown]

NARRATIVE: CASE EVENT DATE: 201808
